FAERS Safety Report 7822601-0 (Version None)
Quarter: 2011Q4

REPORT INFORMATION
  Report Type: 
  Country: None (occurrence: None)
  Receive Date: 20111018
  Receipt Date: 20111001
  Transmission Date: 20120403
  Serious: Yes (Hospitalization)
  Sender: FDA-Public Use
  Company Number: PHHY2011JP88203

PATIENT
  Age: 36 Year
  Sex: Male

DRUGS (6)
  1. MESALAMINE [Concomitant]
     Dosage: 3 G PER DAY
  2. PREDNISOLONE [Concomitant]
     Dosage: 10 MG PER DAY
  3. GRANULOCYTAPHERESIS [Concomitant]
  4. PREDNISOLONE [Concomitant]
     Dosage: 60 MG/ DAY
  5. DIAPHENYLSULFON [Concomitant]
     Dosage: UNK UKN, UNK
  6. CYCLOSPORINE [Suspect]
     Indication: PYODERMA GANGRENOSUM
     Dosage: 250 MG PER DAY
     Route: 048

REACTIONS (2)
  - SKIN LESION [None]
  - PAIN OF SKIN [None]
